FAERS Safety Report 8986414 (Version 1)
Quarter: 2012Q4

REPORT INFORMATION
  Report Type: 
  Country: US (occurrence: US)
  Receive Date: 20121227
  Receipt Date: 20121227
  Transmission Date: 20130627
  Serious: Yes (Hospitalization)
  Sender: FDA-Public Use
  Company Number: US-SANOFI-AVENTIS-2012SA092072

PATIENT
  Age: 83 Year
  Sex: Female

DRUGS (1)
  1. AMARYL [Suspect]
     Indication: DIABETES
     Route: 048

REACTIONS (2)
  - Chronic obstructive pulmonary disease [Unknown]
  - Blood glucose increased [Unknown]
